FAERS Safety Report 20777508 (Version 2)
Quarter: 2022Q2

REPORT INFORMATION
  Report Type: Spontaneous
  Country: US (occurrence: None)
  Receive Date: 20220503
  Receipt Date: 20220516
  Transmission Date: 20220721
  Serious: Yes (Death, Life-Threatening, Hospitalization, Other)
  Sender: FDA-Public Use
  Company Number: US-MICRO LABS LIMITED-ML2022-01785

PATIENT
  Age: 12 Year
  Sex: Female

DRUGS (16)
  1. CLINDAMYCIN [Suspect]
     Active Substance: CLINDAMYCIN
     Indication: Staphylococcal infection
  2. DEXAMETHASONE [Suspect]
     Active Substance: DEXAMETHASONE
     Indication: COVID-19
  3. METHYLPREDNISOLONE [Suspect]
     Active Substance: METHYLPREDNISOLONE
     Indication: COVID-19
  4. VANCOMYCIN [Suspect]
     Active Substance: VANCOMYCIN
     Indication: Antibiotic therapy
  5. CEFEPIME [Suspect]
     Active Substance: CEFEPIME HYDROCHLORIDE
     Indication: Antibiotic therapy
  6. FLUCONAZOLE [Suspect]
     Active Substance: FLUCONAZOLE
  7. MICAFUNGIN [Suspect]
     Active Substance: MICAFUNGIN
  8. REMDESIVIR [Concomitant]
     Active Substance: REMDESIVIR
     Indication: COVID-19 treatment
  9. HEPARIN [Concomitant]
     Active Substance: HEPARIN SODIUM
     Indication: Deep vein thrombosis
  10. ANAKINRA [Concomitant]
     Active Substance: ANAKINRA
     Indication: COVID-19
  11. NOREPINEPHRINE [Concomitant]
     Active Substance: NOREPINEPHRINE
  12. MILRINONE [Concomitant]
     Active Substance: MILRINONE
  13. EPINEPHRINE [Concomitant]
     Active Substance: EPINEPHRINE
  14. HUMAN IMMUNOGLOBULIN G [Concomitant]
     Active Substance: HUMAN IMMUNOGLOBULIN G
     Indication: COVID-19
     Route: 042
  15. OXYGEN [Concomitant]
     Active Substance: OXYGEN
     Indication: COVID-19
  16. INSULIN NOS [Concomitant]
     Active Substance: INSULIN NOS
     Indication: Diabetic ketoacidosis

REACTIONS (9)
  - Septic shock [Fatal]
  - Condition aggravated [Fatal]
  - Ventricular tachycardia [Fatal]
  - Cardiac dysfunction [Fatal]
  - Coagulopathy [Fatal]
  - Candida infection [Fatal]
  - Urosepsis [Fatal]
  - Respiratory failure [Fatal]
  - Metabolic acidosis [Fatal]
